FAERS Safety Report 9556041 (Version 2)
Quarter: 2013Q3

REPORT INFORMATION
  Report Type: Spontaneous
  Country: IT (occurrence: IT)
  Receive Date: 20130926
  Receipt Date: 20130926
  Transmission Date: 20140515
  Serious: Yes (Other)
  Sender: FDA-Public Use
  Company Number: IT-TEVA-417934ISR

PATIENT
  Age: 37 Year
  Sex: Male

DRUGS (3)
  1. OLANZAPINA TEVA 10MG [Suspect]
     Indication: BIPOLAR DISORDER
     Dosage: 10 MILLIGRAM DAILY;
     Route: 048
     Dates: start: 20130410, end: 20130508
  2. RIVOTRIL 2.5MG/ML [Concomitant]
     Dosage: 15 GTT DAILY;
     Route: 048
  3. DEPAKIN CHRONO 500MG [Concomitant]
     Dosage: 1500 MILLIGRAM DAILY;
     Route: 048

REACTIONS (5)
  - Therapeutic response unexpected with drug substitution [Recovered/Resolved]
  - Obsessive-compulsive disorder [Recovered/Resolved]
  - Weight decreased [Recovered/Resolved]
  - Depressed mood [Recovered/Resolved]
  - Anxiety [Recovered/Resolved]
